FAERS Safety Report 4974034-2 (Version None)
Quarter: 2006Q2

REPORT INFORMATION
  Report Type: 
  Country: None (occurrence: None)
  Receive Date: 20060410
  Receipt Date: 20060330
  Transmission Date: 20061013
  Serious: Yes (Other)
  Sender: FDA-Public Use
  Company Number: 2006022619

PATIENT
  Age: 47 Year
  Sex: Male
  Weight: 68.0396 kg

DRUGS (10)
  1. TIKOSYN [Suspect]
     Indication: ATRIAL FIBRILLATION
     Dosage: 1000 MCG (500 MCG, TWICE DAILY), ORAL
     Route: 048
     Dates: start: 20060101
  2. COUMADIN [Concomitant]
  3. SPIRONOLACTONE [Concomitant]
  4. LORAZEPAM [Concomitant]
  5. CLONAZEPAM [Concomitant]
  6. DIGOXIN [Concomitant]
  7. ENLAPRIL (ENALAPRIL) [Concomitant]
  8. LIPITOR [Concomitant]
  9. COREG [Concomitant]
  10. ACETYLSALICYLIC ACID (ACETYLSALICYLICA ACID) [Concomitant]

REACTIONS (2)
  - ATRIAL FIBRILLATION [None]
  - PHARMACEUTICAL PRODUCT COMPLAINT [None]
